FAERS Safety Report 9621398 (Version 1)
Quarter: 2013Q4

REPORT INFORMATION
  Report Type: Spontaneous
  Country: US (occurrence: US)
  Receive Date: 20131015
  Receipt Date: 20131015
  Transmission Date: 20140711
  Serious: No
  Sender: FDA-Public Use
  Company Number: US-PFIZER INC-2013292328

PATIENT
  Age: 55 Year
  Sex: Female

DRUGS (2)
  1. ZYVOX [Suspect]
     Dosage: UNK
     Dates: start: 201310
  2. BACTRIM [Concomitant]
     Dosage: UNK

REACTIONS (1)
  - Anaemia [Unknown]
